FAERS Safety Report 6106587-5 (Version None)
Quarter: 2009Q1

REPORT INFORMATION
  Report Type: 
  Country: None (occurrence: None)
  Receive Date: 20090304
  Receipt Date: 20090226
  Transmission Date: 20090719
  Serious: Yes (Hospitalization)
  Sender: FDA-Public Use
  Company Number: 2009SP004492

PATIENT
  Age: 68 Year
  Sex: Female
  Weight: 63 kg

DRUGS (6)
  1. TEMODAL [Suspect]
     Indication: GLIOBLASTOMA MULTIFORME
     Dosage: 75 MG/M2; PO 100 MG/M2; PO
     Route: 048
     Dates: end: 20080918
  2. TEMODAL [Suspect]
     Indication: GLIOBLASTOMA MULTIFORME
     Dosage: 75 MG/M2; PO 100 MG/M2; PO
     Route: 048
     Dates: start: 20071219
  3. BENADRYL [Concomitant]
  4. ONDANSENTRON [Concomitant]
  5. PANTOPRAZOLE SODIUM [Concomitant]
  6. RANITIDINE [Concomitant]

REACTIONS (1)
  - CHOLECYSTITIS ACUTE [None]
